FAERS Safety Report 13762648 (Version 1)
Quarter: 2017Q3

REPORT INFORMATION
  Report Type: Spontaneous
  Country: US (occurrence: US)
  Receive Date: 20170718
  Receipt Date: 20170718
  Transmission Date: 20171127
  Serious: Yes (Hospitalization)
  Sender: FDA-Public Use
  Company Number: None

PATIENT
  Age: 65 Year
  Sex: Male
  Weight: 90 kg

DRUGS (1)
  1. DIVALPROEX [Suspect]
     Active Substance: DIVALPROEX SODIUM
     Indication: AFFECTIVE DISORDER
     Dosage: ?          OTHER DOSE:MG/KG;?
     Route: 048
     Dates: end: 20170606

REACTIONS (2)
  - Lethargy [None]
  - Ammonia increased [None]

NARRATIVE: CASE EVENT DATE: 20170606
